FAERS Safety Report 19100736 (Version 2)
Quarter: 2021Q2

REPORT INFORMATION
  Report Type: Spontaneous
  Country: US (occurrence: US)
  Receive Date: 20210407
  Receipt Date: 20210503
  Transmission Date: 20210717
  Serious: No
  Sender: FDA-Public Use
  Company Number: US-AMGEN INC.-USASP2021051015

PATIENT
  Age: 62 Year
  Sex: Female

DRUGS (1)
  1. AIMOVIG [Suspect]
     Active Substance: ERENUMAB-AOOE
     Indication: MIGRAINE PROPHYLAXIS
     Dosage: 70 MILLIGRAM, QMO
     Route: 065
     Dates: start: 201908

REACTIONS (6)
  - Product storage error [Unknown]
  - Accidental exposure to product [Unknown]
  - Incorrect dose administered by device [Unknown]
  - Wrong technique in product usage process [Unknown]
  - Drug dose omission by device [Unknown]
  - Injury associated with device [Recovered/Resolved]

NARRATIVE: CASE EVENT DATE: 202103
